FAERS Safety Report 9074329 (Version 1)
Quarter: 2013Q1

REPORT INFORMATION
  Report Type: Report from Study
  Country: US (occurrence: US)
  Receive Date: 20130128
  Receipt Date: 20130128
  Transmission Date: 20140127
  Serious: No
  Sender: FDA-Public Use
  Company Number: US-ABBOTT-12P-163-0907300-00

PATIENT
  Age: 20 Year
  Sex: Female

DRUGS (2)
  1. HUMIRA 40 MG/0.8 ML PEN [Suspect]
     Indication: CROHN^S DISEASE
     Dates: start: 20111208
  2. MERCAPTOPURINE [Concomitant]
     Indication: CROHN^S DISEASE
     Dosage: 2 X 50 MG TABLETS DAILY = 100 MG
     Dates: start: 20111208

REACTIONS (2)
  - Injection site pain [Recovered/Resolved]
  - Injection site pain [Recovered/Resolved]
